FAERS Safety Report 5063497-2 (Version None)
Quarter: 2006Q3

REPORT INFORMATION
  Report Type: 
  Country: None (occurrence: None)
  Receive Date: 20060724
  Receipt Date: 20060706
  Transmission Date: 20061208
  Serious: Yes (Life-Threatening, Hospitalization)
  Sender: FDA-Public Use
  Company Number: 2006BI004876

PATIENT
  Age: 44 Year
  Sex: Female
  Weight: 90 kg

DRUGS (23)
  1. ZEVALIN [Suspect]
     Indication: BONE MARROW CONDITIONING REGIMEN
     Dosage: 32 MCI;1X;IV
     Route: 042
     Dates: start: 20060223, end: 20060223
  2. RITUXIMAB [Concomitant]
  3. CARMUSTINE [Concomitant]
  4. ETOPOSIDE [Concomitant]
  5. ARACYTINE [Concomitant]
  6. MELPHALAN [Concomitant]
  7. ALIZAPRIDE [Concomitant]
  8. BENZNIDAZOLE [Concomitant]
  9. TRAMADOL HCL [Concomitant]
  10. BENZODIAZEPINE DERIVATIVES [Concomitant]
  11. HEPARIN [Concomitant]
  12. POLARAMINE [Concomitant]
  13. ACYCLOVIR [Concomitant]
  14. PIPERACETAZINE [Concomitant]
  15. TAZOBACTAM [Concomitant]
  16. TEICOPLANIN [Concomitant]
  17. FLUCONAZOLE [Concomitant]
  18. IDARAC [Concomitant]
  19. NEUPOGEN [Concomitant]
  20. TRILEPTAL [Concomitant]
  21. MIRTAZAPINE [Concomitant]
  22. AMLODIPINE [Concomitant]
  23. PALIFERMIN [Concomitant]

REACTIONS (4)
  - BONE MARROW FAILURE [None]
  - HAEMODIALYSIS [None]
  - RENAL FAILURE ACUTE [None]
  - STEM CELL TRANSPLANT [None]
